FAERS Safety Report 6680309-1 (Version None)
Quarter: 2010Q2

REPORT INFORMATION
  Report Type: 
  Country: None (occurrence: None)
  Receive Date: 20100413
  Receipt Date: 20100406
  Transmission Date: 20101027
  Serious: Yes (Other)
  Sender: FDA-Public Use
  Company Number: TW-ROCHE-695592

PATIENT
  Age: 20 Year
  Sex: Male

DRUGS (4)
  1. OSELTAMIVIR PHOSPHATE [Suspect]
     Dosage: FOR 5 DAYS
     Route: 065
  2. AMPICILLIN [Concomitant]
     Indication: PNEUMONITIS
  3. SULBACTAM [Concomitant]
     Indication: PNEUMONITIS
  4. ERYTHROMYCIN [Concomitant]
     Indication: PNEUMONITIS

REACTIONS (3)
  - ACUTE RESPIRATORY DISTRESS SYNDROME [None]
  - CHLAMYDIAL INFECTION [None]
  - PATHOGEN RESISTANCE [None]
